FAERS Safety Report 5991652-3 (Version None)
Quarter: 2008Q4

REPORT INFORMATION
  Report Type: 
  Country: None (occurrence: None)
  Receive Date: 20081211
  Receipt Date: 20080502
  Transmission Date: 20090506
  Serious: No
  Sender: FDA-Public Use
  Company Number: US-AMGEN-KDL277458

PATIENT
  Sex: Female

DRUGS (1)
  1. ENBREL [Suspect]
     Indication: RHEUMATOID ARTHRITIS
     Dates: start: 20060502, end: 20080102

REACTIONS (5)
  - BRONCHITIS [None]
  - MALAISE [None]
  - PHARYNGITIS STREPTOCOCCAL [None]
  - SINUSITIS [None]
  - WEIGHT DECREASED [None]
